FAERS Safety Report 6415960-7 (Version None)
Quarter: 2009Q4

REPORT INFORMATION
  Report Type: 
  Country: None (occurrence: None)
  Receive Date: 20091027
  Receipt Date: 20091019
  Transmission Date: 20100525
  Serious: Yes (Other)
  Sender: FDA-Public Use
  Company Number: B0599422A

PATIENT
  Sex: Female

DRUGS (7)
  1. PAXIL [Suspect]
     Indication: DRUG USE FOR UNKNOWN INDICATION
     Route: 048
  2. PL [Concomitant]
     Route: 048
  3. CALONAL [Concomitant]
     Route: 048
  4. NAUZELIN [Concomitant]
     Route: 065
  5. BIO THREE [Concomitant]
     Route: 048
  6. TANNALBIN [Concomitant]
     Route: 048
  7. LOPEMIN [Concomitant]
     Route: 048

REACTIONS (3)
  - HYPOAESTHESIA [None]
  - MUSCULOSKELETAL STIFFNESS [None]
  - PARALYSIS [None]
